FAERS Safety Report 22598234 (Version 2)
Quarter: 2023Q2

REPORT INFORMATION
  Report Type: Spontaneous
  Country: US (occurrence: US)
  Receive Date: 20230614
  Receipt Date: 20230620
  Transmission Date: 20230721
  Serious: Yes (Other)
  Sender: FDA-Public Use
  Company Number: US-UCBSA-2023029539

PATIENT
  Age: 13 Year
  Sex: Female

DRUGS (3)
  1. LACOSAMIDE [Suspect]
     Active Substance: LACOSAMIDE
     Indication: Epilepsy
     Dosage: 400 MILLIGRAM
     Dates: start: 201504, end: 2015
  2. LEVETIRACETAM [Suspect]
     Active Substance: LEVETIRACETAM
     Indication: Epilepsy
     Dosage: 2500 MILLIGRAM
     Dates: start: 201504, end: 2015
  3. CLOBAZAM [Suspect]
     Active Substance: CLOBAZAM
     Indication: Epilepsy
     Dosage: 5 MILLIGRAM
     Dates: start: 201504, end: 2015

REACTIONS (3)
  - Seizure [Recovering/Resolving]
  - Depressed level of consciousness [Recovering/Resolving]
  - Automatism epileptic [Recovering/Resolving]

NARRATIVE: CASE EVENT DATE: 20150101
